FAERS Safety Report 8516411-9 (Version None)
Quarter: 2012Q3

REPORT INFORMATION
  Report Type: 
  Country: None (occurrence: None)
  Receive Date: 20120718
  Receipt Date: 20120710
  Transmission Date: 20120928
  Serious: No
  Sender: FDA-Public Use
  Company Number: US-BIOGENIDEC-2012BI024772

PATIENT
  Age: 61 Year
  Sex: Female

DRUGS (5)
  1. AVONEX [Suspect]
     Route: 030
     Dates: start: 20120101, end: 20120708
  2. TYSABRI [Concomitant]
     Indication: MULTIPLE SCLEROSIS
     Route: 042
     Dates: start: 20050223, end: 20050223
  3. TYSABRI [Concomitant]
     Route: 042
     Dates: start: 20080624, end: 20101011
  4. AVONEX [Suspect]
     Indication: MULTIPLE SCLEROSIS
     Route: 030
     Dates: start: 20000425, end: 20080605
  5. AVONEX [Suspect]
     Route: 030
     Dates: start: 20101117, end: 20110801

REACTIONS (3)
  - LOSS OF CONTROL OF LEGS [None]
  - SECONDARY PROGRESSIVE MULTIPLE SCLEROSIS [None]
  - ABASIA [None]
